FAERS Safety Report 4433621-0 (Version None)
Quarter: 2004Q3

REPORT INFORMATION
  Report Type: 
  Country: None (occurrence: None)
  Receive Date: 20040825
  Receipt Date: 20040825
  Transmission Date: 20050211
  Serious: No
  Sender: FDA-Public Use
  Company Number: None

PATIENT
  Age: 88 Year
  Sex: Male

DRUGS (8)
  1. AMANTADINE HCL [Suspect]
     Indication: INFLUENZA
     Dosage: 100 MG BID
  2. CARDIZEM CD [Concomitant]
  3. CARDURA [Concomitant]
  4. VIOXX [Concomitant]
  5. COUMADIN [Concomitant]
  6. ARICEPT [Concomitant]
  7. ASPIRIN [Concomitant]
  8. ZOLOFT [Concomitant]

REACTIONS (1)
  - CONVULSION [None]
